FAERS Safety Report 23632316 (Version 1)
Quarter: 2024Q1

REPORT INFORMATION
  Report Type: Spontaneous
  Country: US (occurrence: US)
  Receive Date: 20240314
  Receipt Date: 20240314
  Transmission Date: 20240410
  Serious: No
  Sender: FDA-Public Use
  Company Number: ENDB23-04202

PATIENT
  Age: 44 Year
  Sex: Male

DRUGS (6)
  1. XIAFLEX [Suspect]
     Active Substance: COLLAGENASE CLOSTRIDIUM HISTOLYTICUM
     Indication: Dupuytren^s contracture
     Dosage: UNK UNKNOWN, UNKNOWN (ONE BOTTLE RIGHT MIDDLE RING AND SMALL FINGER SPIRAL CORD (RMRS))
     Route: 051
     Dates: start: 201805
  2. XIAFLEX [Suspect]
     Active Substance: COLLAGENASE CLOSTRIDIUM HISTOLYTICUM
     Dosage: UNK UNKNOWN, UNKNOWN (TWO BOTTLES RMRS)
     Route: 051
     Dates: start: 201905
  3. XIAFLEX [Suspect]
     Active Substance: COLLAGENASE CLOSTRIDIUM HISTOLYTICUM
     Dosage: UNK UNKNOWN, UNKNOWN (ONE BOTTLE RMRS)
     Route: 051
     Dates: start: 202003
  4. XIAFLEX [Suspect]
     Active Substance: COLLAGENASE CLOSTRIDIUM HISTOLYTICUM
     Dosage: UNK UNKNOWN, UNKNOWN (TWO BOTTLE RIGHT AND LEFT HAND, 0.7 MG LEFT THUMB (LTH), 0.2 MG RIGHT INDEX FI
     Route: 051
     Dates: start: 202007
  5. XIAFLEX [Suspect]
     Active Substance: COLLAGENASE CLOSTRIDIUM HISTOLYTICUM
     Dosage: UNK UNKNOWN, UNKNOWN (TWO BOTTLES MIDDLE RING AND SMALL FINGER SPIRAL CORD)
     Route: 051
     Dates: start: 202206
  6. XIAFLEX [Suspect]
     Active Substance: COLLAGENASE CLOSTRIDIUM HISTOLYTICUM
     Dosage: UNK UNKNOWN, UNKNOWN (TWO BOTTLES MRS)
     Route: 051
     Dates: start: 202310

REACTIONS (7)
  - Dupuytren^s contracture [Unknown]
  - Disease recurrence [Unknown]
  - Peripheral swelling [Unknown]
  - Contusion [Unknown]
  - Injection site haemorrhage [Unknown]
  - Wrong technique in product usage process [Unknown]
  - Off label use [Unknown]
